FAERS Safety Report 25014198 (Version 6)
Quarter: 2025Q4

REPORT INFORMATION
  Report Type: Report from Study
  Country: GB (occurrence: GB)
  Receive Date: 20250226
  Receipt Date: 20251103
  Transmission Date: 20260118
  Serious: Yes (Hospitalization, Other)
  Sender: AMGEN
  Company Number: GB-AMGEN-GBRSL2024148515

PATIENT
  Age: 58 Year
  Sex: Male

DRUGS (2)
  1. ECULIZUMAB [Suspect]
     Active Substance: ECULIZUMAB
     Indication: Paroxysmal nocturnal haemoglobinuria
     Dosage: 1500 MILLIGRAM, Q2WK
     Route: 065
     Dates: start: 20240724
  2. ECULIZUMAB [Suspect]
     Active Substance: ECULIZUMAB
     Dosage: UNK
     Route: 065

REACTIONS (10)
  - Syncope [Recovered/Resolved]
  - Diplopia [Unknown]
  - Unevaluable event [Unknown]
  - Dementia [Unknown]
  - Diarrhoea [Unknown]
  - Restlessness [Unknown]
  - Hypotension [Unknown]
  - Off label use [Unknown]
  - Jaundice [Unknown]
  - Movement disorder [Unknown]

NARRATIVE: CASE EVENT DATE: 20240724
